FAERS Safety Report 5535431-X (Version None)
Quarter: 2007Q4

REPORT INFORMATION
  Report Type: 
  Country: None (occurrence: None)
  Receive Date: 20071206
  Receipt Date: 20071129
  Transmission Date: 20080405
  Serious: Yes (Hospitalization)
  Sender: FDA-Public Use
  Company Number: US-PFIZER INC-2007100412

PATIENT

DRUGS (2)
  1. CAMPTOSAR [Suspect]
     Indication: DRUG USE FOR UNKNOWN INDICATION
  2. AVASTIN [Suspect]
     Indication: GLIOMA

REACTIONS (1)
  - WHITE BLOOD CELL COUNT INCREASED [None]
